FAERS Safety Report 9686361 (Version 1)
Quarter: 2013Q4

REPORT INFORMATION
  Report Type: Spontaneous
  Country: FR (occurrence: FR)
  Receive Date: 20131113
  Receipt Date: 20131113
  Transmission Date: 20140711
  Serious: Yes (Hospitalization, Disabling, Other)
  Sender: FDA-Public Use
  Company Number: FR-ELI_LILLY_AND_COMPANY-FR201311001499

PATIENT
  Age: 43 Year
  Sex: Male

DRUGS (6)
  1. EFIENT [Suspect]
     Indication: STENT PLACEMENT
     Dosage: 10 MG, SINGLE
     Route: 048
     Dates: start: 20120831, end: 20120831
  2. PLAVIX [Suspect]
     Dosage: 600 MG, UNK
     Route: 048
     Dates: start: 20120831, end: 20120831
  3. PLAVIX [Suspect]
     Dosage: UNK
     Dates: start: 20130917
  4. ASPEGIC [Suspect]
     Dosage: 250 MG, UNK
     Route: 042
     Dates: start: 20120831, end: 20120831
  5. KARDEGIC [Suspect]
     Dosage: 75 MG, UNK
     Dates: start: 20120831
  6. HEPARIN [Suspect]
     Dosage: 4000 IU, UNK
     Route: 042
     Dates: start: 20120831, end: 20120831

REACTIONS (6)
  - Cerebrovascular accident [Recovered/Resolved with Sequelae]
  - Hemiplegia [Not Recovered/Not Resolved]
  - Aphasia [Not Recovered/Not Resolved]
  - Neurologic neglect syndrome [Not Recovered/Not Resolved]
  - Urinary retention [Unknown]
  - Foot deformity [Unknown]
